FAERS Safety Report 17821759 (Version 1)
Quarter: 2020Q2

REPORT INFORMATION
  Report Type: Spontaneous
  Country: US (occurrence: US)
  Receive Date: 20200525
  Receipt Date: 20200525
  Transmission Date: 20200714
  Serious: Yes (Other)
  Sender: FDA-Public Use
  Company Number: US-IPSEN BIOPHARMACEUTICALS, INC.-2020-09200

PATIENT
  Sex: Female

DRUGS (1)
  1. SOMATULINE DEPOT [Suspect]
     Active Substance: LANREOTIDE ACETATE
     Indication: PRODUCT USED FOR UNKNOWN INDICATION
     Dosage: 120 MG (UPPER OUTER BUTTOCKS, ROTATE SIDES)
     Route: 058

REACTIONS (3)
  - Occupational exposure to SARS-CoV-2 [Unknown]
  - Coronavirus test positive [Recovering/Resolving]
  - Coronavirus infection [Recovering/Resolving]
